FAERS Safety Report 24361578 (Version 1)
Quarter: 2024Q3

REPORT INFORMATION
  Report Type: Spontaneous
  Country: IT (occurrence: IT)
  Receive Date: 20240925
  Receipt Date: 20240925
  Transmission Date: 20241017
  Serious: Yes (Death)
  Sender: STRIDES
  Company Number: IT-STRIDES ARCOLAB LIMITED-2024SP012317

PATIENT
  Age: 61 Year
  Sex: Male

DRUGS (5)
  1. PREDNISOLONE [Suspect]
     Active Substance: PREDNISOLONE
     Indication: Mastocytosis
     Dosage: 25 MILLIGRAM, QD
     Route: 065
  2. HYDROXYUREA [Suspect]
     Active Substance: HYDROXYUREA
     Indication: Mastocytosis
     Dosage: 500 MILLIGRAM, QD
     Route: 065
  3. ZOLEDRONIC ACID [Suspect]
     Active Substance: ZOLEDRONIC ACID
     Indication: Mastocytosis
     Dosage: UNK, QD
     Route: 065
  4. MIDOSTAURIN [Concomitant]
     Active Substance: MIDOSTAURIN
     Indication: Mastocytic leukaemia
     Dosage: 50 MILLIGRAM, BID
     Route: 065
     Dates: start: 202107
  5. AVAPRITINIB [Concomitant]
     Active Substance: AVAPRITINIB
     Indication: Mastocytic leukaemia
     Dosage: 200 MILLIGRAM, QD
     Route: 065

REACTIONS (2)
  - Drug ineffective [Fatal]
  - Disease progression [Fatal]
